FAERS Safety Report 5735926-X (Version None)
Quarter: 2008Q2

REPORT INFORMATION
  Report Type: 
  Country: None (occurrence: None)
  Receive Date: 20080512
  Receipt Date: 20080428
  Transmission Date: 20081010
  Serious: Yes (Hospitalization)
  Sender: FDA-Public Use
  Company Number: APP200800339

PATIENT
  Age: 58 Year
  Sex: Male
  Weight: 84.8226 kg

DRUGS (4)
  1. NEBUPENT [Suspect]
     Indication: PROPHYLAXIS
     Dosage: INHALATION
     Route: 055
     Dates: start: 20080324
  2. NEBUPENT [Suspect]
     Indication: PROPHYLAXIS
     Dosage: INHALATION
     Route: 055
     Dates: start: 20080422
  3. CELLCEPT [Concomitant]
  4. PROGRAF [Concomitant]

REACTIONS (2)
  - HYPONATRAEMIA [None]
  - ORTHOSTATIC HYPOTENSION [None]
